FAERS Safety Report 5615093-3 (Version None)
Quarter: 2008Q1

REPORT INFORMATION
  Report Type: 
  Country: None (occurrence: None)
  Receive Date: 20080206
  Receipt Date: 20070522
  Transmission Date: 20080703
  Serious: Yes (Hospitalization)
  Sender: FDA-Public Use
  Company Number: A0644107A

PATIENT
  Age: 65 Year
  Sex: Male
  Weight: 94.1 kg

DRUGS (2)
  1. ARIXTRA [Suspect]
     Dosage: 2.5MG PER DAY
     Route: 058
     Dates: start: 20070312, end: 20070314
  2. COUMADIN [Concomitant]

REACTIONS (2)
  - OEDEMA [None]
  - OEDEMA PERIPHERAL [None]
